FAERS Safety Report 5530431-8 (Version None)
Quarter: 2007Q4

REPORT INFORMATION
  Report Type: 
  Country: None (occurrence: None)
  Receive Date: 20071127
  Receipt Date: 20071127
  Transmission Date: 20080405
  Serious: No
  Sender: FDA-Public Use
  Company Number: None

PATIENT
  Age: 54 Year
  Sex: Male
  Weight: 74.9 kg

DRUGS (13)
  1. CAPTOPRIL [Suspect]
     Indication: HYPERTENSION
     Dosage: 3.125 MG TID NG TUBE
     Dates: start: 20070921, end: 20070926
  2. CAPTOPRIL [Suspect]
     Indication: HYPERTENSION
     Dosage: 12.5 MG TID PO
     Route: 048
     Dates: start: 20070926
  3. INSULIN - SLIDING SCALE [Concomitant]
  4. PANTOPRAZOLE SODIUM [Concomitant]
  5. ZOSYN [Concomitant]
  6. POTASSIUM SUPPLEMENT [Concomitant]
  7. COMBIVENT [Concomitant]
  8. ASPIRIN [Concomitant]
  9. ATORVASTATIN [Concomitant]
  10. PLAVIX [Concomitant]
  11. LOVENOX [Concomitant]
  12. FUROSEMIDE [Concomitant]
  13. HEPARIN [Concomitant]

REACTIONS (1)
  - LIP SWELLING [None]
